FAERS Safety Report 15280572 (Version 2)
Quarter: 2018Q3

REPORT INFORMATION
  Report Type: Report from Study
  Country: None (occurrence: JP)
  Receive Date: 20180815
  Receipt Date: 20180907
  Transmission Date: 20181010
  Serious: Yes (Hospitalization)
  Sender: FDA-Public Use
  Company Number: JP-ABBVIE-18P-087-2448061-00

PATIENT
  Age: 72 Year
  Sex: Male
  Weight: 69.8 kg

DRUGS (2)
  1. LEUPRORELIN ACETATE [Suspect]
     Active Substance: LEUPROLIDE ACETATE
     Indication: BULBOSPINAL MUSCULAR ATROPHY CONGENITAL
     Dosage: 11.25 MG, Q3MONTHS
     Route: 058
     Dates: start: 20180125
  2. LEUPRORELIN ACETATE [Suspect]
     Active Substance: LEUPROLIDE ACETATE
     Dosage: 11.25 MG, Q3MONTHS
     Route: 058
     Dates: start: 20180725

REACTIONS (3)
  - Brain contusion [Recovering/Resolving]
  - Inappropriate schedule of drug administration [Unknown]
  - Accident [Recovering/Resolving]

NARRATIVE: CASE EVENT DATE: 20180717
